FAERS Safety Report 9299523 (Version 2)
Quarter: 2013Q3

REPORT INFORMATION
  Report Type: Report from Study
  Country: CA (occurrence: CA)
  Receive Date: 20130521
  Receipt Date: 20130919
  Transmission Date: 20140515
  Serious: Yes (Hospitalization, Other)
  Sender: FDA-Public Use
  Company Number: CA-ROCHE-1223542

PATIENT
  Age: 61 Year
  Sex: Female
  Weight: 77 kg

DRUGS (7)
  1. ACTEMRA [Suspect]
     Indication: RHEUMATOID ARTHRITIS
     Dosage: INFUSION INTERRUPTED ON 25/APR/2013
     Route: 042
     Dates: start: 20121120
  2. LIPITOR [Concomitant]
     Route: 065
  3. PLAQUENIL [Concomitant]
     Route: 065
  4. BABY ASA [Concomitant]
     Route: 065
  5. METFORMIN [Concomitant]
     Route: 065
  6. METHOTREXATE [Concomitant]
     Route: 065
  7. FOLIC ACID [Concomitant]
     Route: 065

REACTIONS (11)
  - Bladder prolapse [Recovered/Resolved]
  - Psoriasis [Recovering/Resolving]
  - Inflammation [Recovering/Resolving]
  - Joint swelling [Not Recovered/Not Resolved]
  - Arthralgia [Not Recovered/Not Resolved]
  - Local swelling [Not Recovered/Not Resolved]
  - Pain in extremity [Not Recovered/Not Resolved]
  - Wound infection [Recovered/Resolved]
  - Urinary tract infection [Recovered/Resolved]
  - Drug hypersensitivity [Recovered/Resolved]
  - Psoriasis [Recovering/Resolving]
